FAERS Safety Report 17099946 (Version 2)
Quarter: 2020Q1

REPORT INFORMATION
  Report Type: Other
  Country: CA (occurrence: CA)
  Receive Date: 20191202
  Receipt Date: 20200318
  Transmission Date: 20200409
  Serious: Yes (Hospitalization, Other)
  Sender: FDA-Public Use
  Company Number: CA-COVIS PHARMA B.V.-2019COV00285

PATIENT
  Age: 69 Year
  Sex: Male

DRUGS (12)
  1. SALBUTAMOL SULFATE [Suspect]
     Active Substance: ALBUTEROL SULFATE
     Dosage: 100 ?G, UNK
     Dates: start: 20090101
  2. ZENHALE [Suspect]
     Active Substance: FORMOTEROL FUMARATE\MOMETASONE FUROATE
     Dosage: UNK, 2X/DAY
     Dates: start: 20140101
  3. ALVESCO [Suspect]
     Active Substance: CICLESONIDE
     Dosage: 200 ?G, 1X/DAY
     Route: 055
  4. IVERMECTIN. [Suspect]
     Active Substance: IVERMECTIN
     Dosage: UNK
  5. SULFASALAZINE. [Concomitant]
     Active Substance: SULFASALAZINE
     Indication: ARTHRITIS
  6. ARAVA [Concomitant]
     Active Substance: LEFLUNOMIDE
     Indication: ARTHRITIS
  7. OMNARIS [Suspect]
     Active Substance: CICLESONIDE
     Dosage: 50 ?G, UNK
     Route: 045
  8. PANTOLOC [Suspect]
     Active Substance: PANTOPRAZOLE SODIUM
     Dosage: 40 MG, UNK
  9. PLAQUENIL [Suspect]
     Active Substance: HYDROXYCHLOROQUINE SULFATE
     Dosage: UNK
  10. PREDNISONE. [Suspect]
     Active Substance: PREDNISONE
     Indication: ASTHMA
     Dosage: 5 MG, UNK
     Route: 048
     Dates: start: 20090101
  11. PREDNISONE. [Suspect]
     Active Substance: PREDNISONE
     Dosage: 50 MG, UNK
  12. UMECLIDINIUM BROMIDE [Suspect]
     Active Substance: UMECLIDINIUM BROMIDE
     Dosage: 62.5 ?G, UNK

REACTIONS (33)
  - Fungal infection [Recovered/Resolved]
  - Inflammation [Recovered/Resolved]
  - Spirometry abnormal [Recovered/Resolved]
  - Systemic inflammatory response syndrome [Recovered/Resolved]
  - Blood disorder [Recovered/Resolved]
  - Eosinophilic granulomatosis with polyangiitis [Recovered/Resolved]
  - Therapeutic product effect incomplete [Recovered/Resolved]
  - Abdominal pain lower [Recovered/Resolved]
  - Infection parasitic [Recovered/Resolved]
  - Secretion discharge [Recovered/Resolved]
  - Weight decreased [Recovered/Resolved]
  - Bronchial wall thickening [Recovered/Resolved]
  - Dyspnoea [Recovered/Resolved]
  - Malaise [Recovered/Resolved]
  - Sleep disorder due to a general medical condition [Recovered/Resolved]
  - Suprapubic pain [Recovered/Resolved]
  - Vasculitis [Recovered/Resolved]
  - Condition aggravated [Recovered/Resolved]
  - Oropharyngeal pain [Recovered/Resolved]
  - Wheezing [Recovered/Resolved]
  - Sinusitis [Recovered/Resolved]
  - Eosinophil count increased [Recovered/Resolved]
  - Skin disorder [Recovered/Resolved]
  - Asthma [Recovered/Resolved]
  - Blood immunoglobulin E increased [Recovered/Resolved]
  - Bronchiolitis [Recovered/Resolved]
  - Pneumonitis [Recovered/Resolved]
  - Productive cough [Recovered/Resolved]
  - Pneumonia [Recovered/Resolved]
  - Atelectasis [Recovered/Resolved]
  - Underweight [Recovered/Resolved]
  - Dysphonia [Recovered/Resolved]
  - Cough [Recovered/Resolved]

NARRATIVE: CASE EVENT DATE: 201809
